FAERS Safety Report 8532164-2 (Version None)
Quarter: 2012Q3

REPORT INFORMATION
  Report Type: 
  Country: None (occurrence: None)
  Receive Date: 20120723
  Receipt Date: 20120716
  Transmission Date: 20120928
  Serious: Yes (Hospitalization)
  Sender: FDA-Public Use
  Company Number: FR-GLAXOSMITHKLINE-B0788530A

PATIENT
  Sex: Female

DRUGS (3)
  1. ATROVENT [Concomitant]
  2. FLUTICASONE PROPIONATE/SALMETEROL [Suspect]
     Indication: BRONCHIAL DISORDER
     Route: 055
     Dates: start: 20050101, end: 20120317
  3. ACTISOUFRE [Concomitant]

REACTIONS (8)
  - SKIN FRAGILITY [None]
  - ALOPECIA [None]
  - MIGRAINE [None]
  - FEELING COLD [None]
  - ERYTHEMA [None]
  - MUSCLE SPASMS [None]
  - DYSPHONIA [None]
  - BRONCHITIS CHRONIC [None]
